FAERS Safety Report 17288673 (Version 1)
Quarter: 2020Q1

REPORT INFORMATION
  Report Type: Spontaneous
  Country: CN (occurrence: CN)
  Receive Date: 20200120
  Receipt Date: 20200120
  Transmission Date: 20200409
  Serious: Yes (Other)
  Sender: FDA-Public Use
  Company Number: CN-009507513-2001CHN004060

PATIENT
  Age: 53 Year
  Sex: Male

DRUGS (6)
  1. IMIPENEM AND CILASTATIN [Suspect]
     Active Substance: CILASTATIN SODIUM\IMIPENEM
     Indication: LUNG OPACITY
     Dosage: UNK
     Route: 042
     Dates: start: 20180724
  2. AMOXICILLIN (+) SULBACTAM SODIUM [Suspect]
     Active Substance: AMOXICILLIN\SULBACTAM
     Indication: LUNG OPACITY
     Dosage: 3.0 (UNIT NOT PROVIDED) Q12H
     Route: 042
     Dates: start: 201806, end: 201806
  3. CEFOPERAZONE SODIUM (+) SULBACTAM SODIUM [Suspect]
     Active Substance: CEFOPERAZONE SODIUM\SULBACTAM SODIUM
     Dosage: 3.0 (UNIT NOT PROVIDED), Q8H
     Route: 042
     Dates: start: 201809, end: 20180907
  4. CEFOPERAZONE SODIUM (+) SULBACTAM SODIUM [Suspect]
     Active Substance: CEFOPERAZONE SODIUM\SULBACTAM SODIUM
     Indication: LUNG OPACITY
     Dosage: UNK
     Route: 042
     Dates: start: 20180621, end: 20180627
  5. AZTREONAM. [Suspect]
     Active Substance: AZTREONAM
     Indication: LUNG OPACITY
     Route: 042
  6. CEFTIZOXIME [Suspect]
     Active Substance: CEFTIZOXIME
     Indication: LUNG OPACITY
     Dosage: 2.0 (UNIT NOT PROVIDED), Q12H
     Route: 042
     Dates: start: 20180719, end: 20180723

REACTIONS (1)
  - Interstitial lung disease [Recovering/Resolving]

NARRATIVE: CASE EVENT DATE: 201809
